FAERS Safety Report 8374054-4 (Version None)
Quarter: 2012Q2

REPORT INFORMATION
  Report Type: 
  Country: None (occurrence: None)
  Receive Date: 20120517
  Receipt Date: 20120517
  Transmission Date: 20120825
  Serious: Yes (Life-Threatening, Hospitalization, Disabling)
  Sender: FDA-Public Use
  Company Number: None

PATIENT
  Sex: Female
  Weight: 170.0989 kg

DRUGS (1)
  1. DEPO-PROVERA [Suspect]
     Indication: CONTRACEPTION
     Dosage: 1 SHOT EVERY THREE MONTHS IM
     Route: 030

REACTIONS (4)
  - PULMONARY EMBOLISM [None]
  - VISION BLURRED [None]
  - DIZZINESS [None]
  - HEADACHE [None]
